FAERS Safety Report 9753706 (Version 1)
Quarter: 2013Q4

REPORT INFORMATION
  Report Type: Spontaneous
  Country: US (occurrence: US)
  Receive Date: 20131213
  Receipt Date: 20131213
  Transmission Date: 20140711
  Serious: No
  Sender: FDA-Public Use
  Company Number: US-GILEAD-2009-0026199

PATIENT
  Sex: Female
  Weight: 74.84 kg

DRUGS (23)
  1. LETAIRIS [Suspect]
     Indication: PULMONARY ARTERIAL HYPERTENSION
     Route: 048
     Dates: start: 20071218
  2. APAP/ISOMETHEPTEN/DICHL [Concomitant]
  3. ALLBEE C-800 [Concomitant]
  4. TOPAMAX [Concomitant]
  5. VITAMIN B COMPLEX [Concomitant]
  6. VITAMIN C [Concomitant]
  7. REVATIO [Concomitant]
  8. LORAZEPAM [Concomitant]
  9. FUROSEMIDE [Concomitant]
  10. DICYCLOMINE [Concomitant]
  11. LOMOTIL [Concomitant]
  12. LEVOTHYROXINE [Concomitant]
  13. ZOLPIDEM TARTRATE [Concomitant]
  14. LYRICA [Concomitant]
  15. PROMETHAZINE [Concomitant]
  16. ZOFRAN [Concomitant]
  17. VITAMIN E [Concomitant]
  18. NEXIUM [Concomitant]
  19. SPIRONOLACTONE [Concomitant]
  20. LEXAPRO [Concomitant]
  21. ALMEBEX PLUS B-12 [Concomitant]
  22. DHEA [Concomitant]
  23. VITAMIN D [Concomitant]

REACTIONS (2)
  - Diarrhoea [Unknown]
  - Abdominal pain [Unknown]
